FAERS Safety Report 12123963 (Version 1)
Quarter: 2016Q1

REPORT INFORMATION
  Report Type: Spontaneous
  Country: US (occurrence: US)
  Receive Date: 20160229
  Receipt Date: 20160229
  Transmission Date: 20160526
  Serious: No
  Sender: FDA-Public Use
  Company Number: US-PFIZER INC-2016069860

PATIENT
  Age: 53 Year
  Sex: Female
  Weight: 86 kg

DRUGS (1)
  1. ADVIL COLD AND SINUS [Suspect]
     Active Substance: IBUPROFEN\PSEUDOEPHEDRINE HYDROCHLORIDE
     Indication: RHINORRHOEA
     Dosage: IBUPROFEN 200 /PSEUDOPHEDRINE 30MG, 2 DF, EVERY 4 HRS
     Dates: start: 20160127, end: 20160129

REACTIONS (1)
  - Drug ineffective [Not Recovered/Not Resolved]

NARRATIVE: CASE EVENT DATE: 20160127
